FAERS Safety Report 24946504 (Version 1)
Quarter: 2025Q1

REPORT INFORMATION
  Report Type: Spontaneous
  Country: CH (occurrence: CH)
  Receive Date: 20250210
  Receipt Date: 20250210
  Transmission Date: 20250408
  Serious: Yes (Life-Threatening, Hospitalization, Other)
  Sender: CHEPLAPHARM
  Company Number: None

PATIENT
  Age: 77 Year
  Sex: Male
  Weight: 66.8 kg

DRUGS (12)
  1. OLANZAPINE [Interacting]
     Active Substance: OLANZAPINE
     Indication: Major depression
     Dosage: REPORTED AS: ZYPREXA 5 MG P.O. 0-0-3-0, REDUCTION TO 0-0-1-0 IN NOVEMBER 2024, STOP ON 11.12.2024
     Route: 048
     Dates: start: 202411, end: 20241211
  2. OLANZAPINE [Interacting]
     Active Substance: OLANZAPINE
     Indication: Major depression
     Dosage: REPORTED AS: ZYPREXA 5 MG P.O. 0-0-3-0, REDUCTION TO 0-0-1-0 IN NOVEMBER 2024, STOP ON 11.12.2024
     Route: 048
     Dates: end: 202411
  3. AKINETON [Interacting]
     Active Substance: BIPERIDEN HYDROCHLORIDE
     Dosage: REPORTED AS: AKINETON RETARD 4 MG P.O. 1-0-0-0
     Route: 048
  4. ASPIRIN [Concomitant]
     Active Substance: ASPIRIN
     Dosage: REPORTED AS: ASPIRIN CARDIO 100 MG P.O. 1-0-0-0
     Route: 048
  5. REMERON [Concomitant]
     Active Substance: MIRTAZAPINE
     Dosage: REPORTED AS: REMERON 30 MG P.O. 0-0-0.5-0
     Route: 048
  6. OXAZEPAM [Concomitant]
     Active Substance: OXAZEPAM
     Route: 048
  7. PIPAMPERONE [Concomitant]
     Active Substance: PIPAMPERONE
     Route: 048
  8. RISPERDAL [Concomitant]
     Active Substance: RISPERIDONE
     Dosage: REPORTED AS: RISPERDAL 1 MG FILM-COATED TABLET P.O. 0.5.-0-0.5
     Route: 048
  9. RISPERDAL [Concomitant]
     Active Substance: RISPERIDONE
     Route: 048
  10. ACETAMINOPHEN\CODEINE PHOSPHATE [Concomitant]
     Active Substance: ACETAMINOPHEN\CODEINE PHOSPHATE
     Route: 048
  11. SODIUM PICOSULFATE [Concomitant]
     Active Substance: SODIUM PICOSULFATE
     Route: 048
  12. MOVICOL [Concomitant]
     Active Substance: POLYETHYLENE GLYCOL 3350\POTASSIUM CHLORIDE\SODIUM BICARBONATE\SODIUM CHLORIDE
     Route: 048

REACTIONS (5)
  - Aspiration [Recovering/Resolving]
  - Cardiac arrest [Recovered/Resolved]
  - Anticholinergic effect [Unknown]
  - Drug interaction [Recovered/Resolved]
  - Drug ineffective [Unknown]

NARRATIVE: CASE EVENT DATE: 20241201
